FAERS Safety Report 8032336-X (Version None)
Quarter: 2011Q4

REPORT INFORMATION
  Report Type: 
  Country: None (occurrence: None)
  Receive Date: 20111201
  Receipt Date: 20110824
  Transmission Date: 20120403
  Serious: Yes (Hospitalization)
  Sender: FDA-Public Use
  Company Number: 20110824CINRY2226

PATIENT
  Sex: Female

DRUGS (2)
  1. CINRYZE [Suspect]
     Indication: PROPHYLAXIS
     Dosage: (1000 UNIT, 1 IN 1 D), INTRAVENOUS
     Route: 042
  2. CINRYZE [Suspect]
     Indication: HEREDITARY ANGIOEDEMA
     Dosage: (1000 UNIT, 1 IN 1 D), INTRAVENOUS
     Route: 042

REACTIONS (2)
  - HEREDITARY ANGIOEDEMA [None]
  - DRUG DOSE OMISSION [None]
